FAERS Safety Report 19264674 (Version 7)
Quarter: 2021Q3

REPORT INFORMATION
  Report Type: Report from Study
  Country: KR (occurrence: KR)
  Receive Date: 20210517
  Receipt Date: 20210915
  Transmission Date: 20211014
  Serious: Yes (Hospitalization)
  Sender: FDA-Public Use
  Company Number: KR-ROCHE-2827431

PATIENT
  Age: 40 Year
  Sex: Male
  Weight: 74.5 kg

DRUGS (44)
  1. ACYCLOVIR. [Concomitant]
     Active Substance: ACYCLOVIR
     Route: 047
     Dates: start: 20210508, end: 20210512
  2. MUPIROCIN. [Concomitant]
     Active Substance: MUPIROCIN
     Route: 061
     Dates: start: 20210510, end: 20210620
  3. AKYNZEO [Concomitant]
     Active Substance: NETUPITANT\PALONOSETRON HYDROCHLORIDE
     Dosage: 300MG/0.5MG
     Route: 048
     Dates: start: 20210401, end: 20210401
  4. AKYNZEO [Concomitant]
     Active Substance: NETUPITANT\PALONOSETRON HYDROCHLORIDE
     Dosage: 300MG/0.5MG
     Route: 048
     Dates: start: 20210713, end: 20210713
  5. AKYNZEO [Concomitant]
     Active Substance: NETUPITANT\PALONOSETRON HYDROCHLORIDE
     Dosage: 1 CAPSULE
     Route: 048
     Dates: start: 20210804, end: 20210804
  6. FAMOTIDINE. [Concomitant]
     Active Substance: FAMOTIDINE
     Route: 048
     Dates: start: 20210713, end: 20210717
  7. FAMOTIDINE. [Concomitant]
     Active Substance: FAMOTIDINE
     Route: 048
     Dates: start: 20210803, end: 20210807
  8. POLATUZUMAB VEDOTIN. [Suspect]
     Active Substance: POLATUZUMAB VEDOTIN
     Indication: B-CELL LYMPHOMA
     Dosage: START DATE OF MOST RECENT DOSE OF STUDY DRUG PRIOR TO SAE IS 22/APR/2021?DOSE LAST STUDY DRUG ADMIN
     Route: 042
     Dates: start: 20210216
  9. CYCLOPHOSPHAMIDE. [Suspect]
     Active Substance: CYCLOPHOSPHAMIDE
     Indication: B-CELL LYMPHOMA
     Dosage: START DATE OF MOST RECENT DOSE OF STUDY DRUG PRIOR TO SAE IS 22/APR/2021?DOSE LAST STUDY DRUG ADMIN
     Route: 042
     Dates: start: 20210216
  10. ACYCLOVIR. [Concomitant]
     Active Substance: ACYCLOVIR
     Route: 042
     Dates: start: 20210507, end: 20210514
  11. FLUOROMETHOLONE. [Concomitant]
     Active Substance: FLUOROMETHOLONE
     Route: 047
     Dates: start: 20210604, end: 20210620
  12. ACETAMINOPHEN. [Concomitant]
     Active Substance: ACETAMINOPHEN
     Route: 048
     Dates: start: 20210713, end: 20210713
  13. CHLORPHENIRAMINE MALEATE. [Concomitant]
     Active Substance: CHLORPHENIRAMINE MALEATE
     Route: 042
     Dates: start: 20210401, end: 20210401
  14. CHLORPHENIRAMINE MALEATE. [Concomitant]
     Active Substance: CHLORPHENIRAMINE MALEATE
     Route: 042
     Dates: start: 20210422, end: 20210422
  15. CHLORPHENIRAMINE MALEATE. [Concomitant]
     Active Substance: CHLORPHENIRAMINE MALEATE
     Route: 042
     Dates: start: 20210713, end: 20210713
  16. PEGTEOGRASTIM [Concomitant]
     Active Substance: PEGTEOGRASTIM
     Route: 058
     Dates: start: 20210423, end: 20210423
  17. PEGTEOGRASTIM [Concomitant]
     Active Substance: PEGTEOGRASTIM
     Route: 058
     Dates: start: 20210623, end: 20210623
  18. MOXIFLOXACIN. [Concomitant]
     Active Substance: MOXIFLOXACIN
     Route: 047
     Dates: start: 20210508, end: 20210722
  19. ACETAMINOPHEN. [Concomitant]
     Active Substance: ACETAMINOPHEN
     Route: 048
     Dates: start: 20210803, end: 20210803
  20. PEGTEOGRASTIM [Concomitant]
     Active Substance: PEGTEOGRASTIM
     Route: 058
     Dates: start: 20210804, end: 20210804
  21. DOXORUBICIN [Suspect]
     Active Substance: DOXORUBICIN
     Indication: B-CELL LYMPHOMA
     Dosage: START DATE OF MOST RECENT DOSE OF STUDY DRUG PRIOR TO SAE IS 22/APR/2021?DOSE LAST STUDY DRUG ADMIN
     Route: 042
     Dates: start: 20210216
  22. AKYNZEO [Concomitant]
     Active Substance: NETUPITANT\PALONOSETRON HYDROCHLORIDE
     Dosage: 300MG/0.5MG
     Route: 048
     Dates: start: 20210422, end: 20210422
  23. ACETAMINOPHEN. [Concomitant]
     Active Substance: ACETAMINOPHEN
     Route: 048
     Dates: start: 20210401, end: 20210401
  24. ACETAMINOPHEN. [Concomitant]
     Active Substance: ACETAMINOPHEN
     Route: 048
     Dates: start: 20210622, end: 20210622
  25. PEGTEOGRASTIM [Concomitant]
     Active Substance: PEGTEOGRASTIM
     Route: 058
     Dates: start: 20210402, end: 20210402
  26. PREDNISONE. [Suspect]
     Active Substance: PREDNISONE
     Indication: B-CELL LYMPHOMA
     Dosage: START DATE OF MOST RECENT DOSE OF STUDY DRUG PRIOR TO SAE: 26/APR/2021?DOSE LAST STUDY DRUG ADMIN PR
     Route: 048
     Dates: start: 20210216
  27. SEPTRIN [Concomitant]
     Active Substance: SULFAMETHOXAZOLE\TRIMETHOPRIM
     Route: 048
     Dates: start: 20210601
  28. SEPTRIN [Concomitant]
     Active Substance: SULFAMETHOXAZOLE\TRIMETHOPRIM
     Route: 048
     Dates: start: 20210302, end: 20210421
  29. AKYNZEO [Concomitant]
     Active Substance: NETUPITANT\PALONOSETRON HYDROCHLORIDE
     Dosage: 300MG/0.5MG
     Route: 048
     Dates: start: 20210622, end: 20210622
  30. CHLORPHENIRAMINE MALEATE. [Concomitant]
     Active Substance: CHLORPHENIRAMINE MALEATE
     Route: 042
     Dates: start: 20210622, end: 20210622
  31. FAMOTIDINE. [Concomitant]
     Active Substance: FAMOTIDINE
     Route: 048
     Dates: start: 20210622, end: 20210626
  32. LORAZEPAM. [Concomitant]
     Active Substance: LORAZEPAM
     Route: 048
     Dates: start: 20210408, end: 20210411
  33. CHLORPHENIRAMINE MALEATE. [Concomitant]
     Active Substance: CHLORPHENIRAMINE MALEATE
     Route: 042
     Dates: start: 20210803, end: 20210803
  34. FAMOTIDINE. [Concomitant]
     Active Substance: FAMOTIDINE
     Route: 048
     Dates: start: 20210422, end: 20210422
  35. MOSUNETUZUMAB. [Suspect]
     Active Substance: MOSUNETUZUMAB
     Indication: B-CELL LYMPHOMA
     Dosage: DOSE LAST STUDY DRUG ADMIN PRIOR SAE IS 30 MG?START DATE OF MOST RECENT DOSE OF STUDY DRUG PRIOR TO
     Route: 042
     Dates: start: 20210216
  36. KETOROLAC [Concomitant]
     Active Substance: KETOROLAC TROMETHAMINE
     Route: 042
     Dates: start: 20210507, end: 20210507
  37. ACYCLOVIR. [Concomitant]
     Active Substance: ACYCLOVIR
     Route: 048
     Dates: start: 20210515, end: 20210522
  38. GANCICLOVIR. [Concomitant]
     Active Substance: GANCICLOVIR
     Route: 047
     Dates: start: 20210512, end: 20210620
  39. FAMOTIDINE. [Concomitant]
     Active Substance: FAMOTIDINE
     Route: 048
     Dates: start: 20210401, end: 20210405
  40. PEGTEOGRASTIM [Concomitant]
     Active Substance: PEGTEOGRASTIM
     Route: 058
     Dates: start: 20210714, end: 20210714
  41. HYALURONATE SODIUM [Concomitant]
     Active Substance: HYALURONATE SODIUM
     Route: 047
     Dates: start: 20210508, end: 20210512
  42. PREDNISOLONE. [Concomitant]
     Active Substance: PREDNISOLONE
     Route: 047
     Dates: start: 20210512, end: 20210603
  43. FLUOROMETHOLONE. [Concomitant]
     Active Substance: FLUOROMETHOLONE
     Route: 047
     Dates: start: 20210621, end: 20210622
  44. ACETAMINOPHEN. [Concomitant]
     Active Substance: ACETAMINOPHEN
     Route: 048
     Dates: start: 20210422, end: 20210422

REACTIONS (1)
  - Herpes zoster [Not Recovered/Not Resolved]

NARRATIVE: CASE EVENT DATE: 20210501
